FAERS Safety Report 24804662 (Version 1)
Quarter: 2025Q1

REPORT INFORMATION
  Report Type: Spontaneous
  Country: US (occurrence: US)
  Receive Date: 20250103
  Receipt Date: 20250103
  Transmission Date: 20250409
  Serious: Yes (Hospitalization)
  Sender: MYLAN
  Company Number: US-MYLANLABS-2024M1116913

PATIENT
  Age: 40 Year
  Sex: Male

DRUGS (1)
  1. BROMOCRIPTINE [Suspect]
     Active Substance: BROMOCRIPTINE
     Indication: Pituitary tumour benign
     Route: 065

REACTIONS (1)
  - Drug ineffective [Unknown]
